FAERS Safety Report 19951478 (Version 2)
Quarter: 2021Q4

REPORT INFORMATION
  Report Type: Spontaneous
  Country: US (occurrence: US)
  Receive Date: 20211013
  Receipt Date: 20211110
  Transmission Date: 20220303
  Serious: Yes (Death, Other)
  Sender: FDA-Public Use
  Company Number: US-BAYER-2021A224512

PATIENT
  Age: 73 Year
  Sex: Male

DRUGS (1)
  1. CIPRO [Suspect]
     Active Substance: CIPROFLOXACIN HYDROCHLORIDE
     Dosage: 500 MG, BID
     Route: 048
     Dates: start: 20140512, end: 20140520

REACTIONS (17)
  - Creutzfeldt-Jakob disease [Fatal]
  - Hydrocephalus [None]
  - Arrhythmia [None]
  - Dizziness [None]
  - Dementia [Fatal]
  - Fatigue [None]
  - Tremor [Fatal]
  - Personality change [Fatal]
  - Speech disorder [Fatal]
  - Memory impairment [Fatal]
  - Chest pain [None]
  - Tendon disorder [None]
  - Muscle disorder [None]
  - Gait disturbance [None]
  - Eructation [None]
  - Diarrhoea [None]
  - Arthralgia [None]

NARRATIVE: CASE EVENT DATE: 20140513
